FAERS Safety Report 4656312-X (Version None)
Quarter: 2005Q2

REPORT INFORMATION
  Report Type: 
  Country: None (occurrence: None)
  Receive Date: 20050509
  Receipt Date: 20050405
  Transmission Date: 20051028
  Serious: No
  Sender: FDA-Public Use
  Company Number: US-GLAXOSMITHKLINE-A0552840A

PATIENT
  Age: 53 Year
  Sex: Female

DRUGS (8)
  1. AVANDAMET [Suspect]
     Dosage: 2TAB TWICE PER DAY
     Route: 048
  2. HYDROCHLOROTHIAZIDE [Concomitant]
     Route: 065
  3. LISINOPRIL [Concomitant]
  4. RANITIDINE [Concomitant]
  5. LIPITOR [Concomitant]
  6. PROCARDIA XL [Concomitant]
     Route: 065
  7. INSULIN [Concomitant]
  8. VITAMINS [Concomitant]

REACTIONS (1)
  - STOMACH DISCOMFORT [None]
